FAERS Safety Report 24414871 (Version 1)
Quarter: 2024Q4

REPORT INFORMATION
  Report Type: Spontaneous
  Country: FR (occurrence: FR)
  Receive Date: 20241009
  Receipt Date: 20241009
  Transmission Date: 20250114
  Serious: Yes (Life-Threatening, Hospitalization, Other)
  Sender: CHEPLAPHARM
  Company Number: None

PATIENT
  Age: 84 Year
  Sex: Male
  Weight: 68 kg

DRUGS (13)
  1. HYDROXYUREA [Suspect]
     Active Substance: HYDROXYUREA
     Indication: Myelofibrosis
     Route: 048
     Dates: start: 201802
  2. HYDROXYUREA [Suspect]
     Active Substance: HYDROXYUREA
     Indication: Myelofibrosis
     Dosage: HYDREA 500MG TO 2 TABLETS/DAY ?DAILY DOSE: 2 DOSAGE FORM
     Route: 048
     Dates: start: 20240909
  3. LANSOPRAZOLE [Suspect]
     Active Substance: LANSOPRAZOLE
     Indication: Prophylaxis
     Dosage: DAILY DOSE: 30 MILLIGRAM
     Route: 048
  4. ASPIRIN\CLOPIDOGREL [Suspect]
     Active Substance: ASPIRIN\CLOPIDOGREL
     Indication: Cardiovascular event prophylaxis
     Dosage: DAILY DOSE: 1 DOSAGE FORM
     Route: 048
     Dates: end: 20240904
  5. TAHOR [Suspect]
     Active Substance: ATORVASTATIN CALCIUM
     Indication: Cardiovascular event prophylaxis
     Dosage: DAILY DOSE: 1 DOSAGE FORM
     Route: 048
  6. METOPROLOL FUMARATE [Suspect]
     Active Substance: METOPROLOL FUMARATE
     Indication: Atrial fibrillation
     Dosage: DAILY DOSE: 50 MILLIGRAM
     Route: 048
  7. RUXOLITINIB [Suspect]
     Active Substance: RUXOLITINIB
     Indication: Myelofibrosis
     Dosage: DAILY DOSE: 20 MILLIGRAM
     Route: 048
     Dates: start: 202007, end: 20240705
  8. RUXOLITINIB [Suspect]
     Active Substance: RUXOLITINIB
     Indication: Myelofibrosis
     Dosage: DAILY DOSE: 10 MILLIGRAM
     Route: 048
     Dates: start: 202007
  9. RUXOLITINIB [Suspect]
     Active Substance: RUXOLITINIB
     Indication: Myelofibrosis
     Dosage: DAILY DOSE: 25 MILLIGRAM
     Route: 048
     Dates: start: 20240706, end: 202409
  10. ESIDREX [Suspect]
     Active Substance: HYDROCHLOROTHIAZIDE
     Indication: Cardiovascular event prophylaxis
     Dosage: DAILY DOSE: 12.5 MILLIGRAM
     Route: 048
     Dates: end: 202409
  11. ELIQUIS [Suspect]
     Active Substance: APIXABAN
     Indication: Cardiovascular event prophylaxis
     Dosage: DAILY DOSE: 5 MILLIGRAM
     Route: 048
     Dates: end: 20240904
  12. FUROSEMIDE [Suspect]
     Active Substance: FUROSEMIDE
     Indication: Myocardial ischaemia
     Dosage: DAILY DOSE: 20 MILLIGRAM
     Route: 048
  13. AMLODIPINE BESYLATE [Suspect]
     Active Substance: AMLODIPINE BESYLATE
     Indication: Myocardial ischaemia
     Dosage: DAILY DOSE: 10 MILLIGRAM
     Route: 048

REACTIONS (9)
  - Acute respiratory distress syndrome [Recovering/Resolving]
  - Interstitial lung disease [Recovering/Resolving]
  - Hyperleukocytosis [Unknown]
  - Hypokalaemia [Unknown]
  - Cardiac failure [Unknown]
  - Pneumocystis jirovecii pneumonia [Unknown]
  - Anaemia [Unknown]
  - Hyponatraemia [Unknown]
  - Off label use [Not Recovered/Not Resolved]

NARRATIVE: CASE EVENT DATE: 20180201
